FAERS Safety Report 5880687-7 (Version None)
Quarter: 2008Q3

REPORT INFORMATION
  Report Type: 
  Country: None (occurrence: None)
  Receive Date: 20080912
  Receipt Date: 20080619
  Transmission Date: 20090109
  Serious: No
  Sender: FDA-Public Use
  Company Number: US-ABBOTT-08P-163-0455277-00

PATIENT
  Sex: Female
  Weight: 95.45 kg

DRUGS (1)
  1. HUMIRA [Suspect]
     Indication: RHEUMATOID ARTHRITIS
     Route: 058
     Dates: start: 20080529

REACTIONS (7)
  - ASTHENIA [None]
  - DIZZINESS [None]
  - DYSGEUSIA [None]
  - FEELING COLD [None]
  - FEELING HOT [None]
  - PAROSMIA [None]
  - TREMOR [None]
